FAERS Safety Report 8228311-2 (Version None)
Quarter: 2012Q1

REPORT INFORMATION
  Report Type: 
  Country: None (occurrence: None)
  Receive Date: 20120322
  Receipt Date: 20120312
  Transmission Date: 20120608
  Serious: Yes (Hospitalization)
  Sender: FDA-Public Use
  Company Number: JP-JNJFOC-20111209771

PATIENT
  Sex: Male
  Weight: 51 kg

DRUGS (13)
  1. REMICADE [Suspect]
     Route: 042
     Dates: start: 20101110
  2. REMICADE [Suspect]
     Route: 042
     Dates: start: 20110525
  3. REMICADE [Suspect]
     Indication: BEHCET'S SYNDROME
     Route: 042
     Dates: start: 20110915
  4. REMICADE [Suspect]
     Route: 042
     Dates: start: 20110719
  5. REMICADE [Suspect]
     Route: 042
     Dates: start: 20101026
  6. CYCLOSPORINE [Concomitant]
     Route: 065
  7. PABRON GOLD [Suspect]
     Indication: NASOPHARYNGITIS
     Route: 048
     Dates: start: 20111106, end: 20111107
  8. COLCHICINE [Concomitant]
     Route: 048
     Dates: start: 20111018
  9. COLCHICINE [Concomitant]
     Route: 048
     Dates: end: 20110621
  10. REMICADE [Suspect]
     Dosage: 8TH DOSE
     Route: 042
     Dates: start: 20110202
  11. REMICADE [Suspect]
     Route: 042
     Dates: start: 20110330
  12. REMICADE [Suspect]
     Route: 042
     Dates: start: 20101208
  13. ISOCOTIN [Concomitant]
     Indication: ANTIBIOTIC PROPHYLAXIS
     Route: 048
     Dates: start: 20101005, end: 20110915

REACTIONS (3)
  - RHABDOMYOLYSIS [None]
  - DIARRHOEA [None]
  - NASOPHARYNGITIS [None]
